FAERS Safety Report 7755288-6 (Version None)
Quarter: 2011Q3

REPORT INFORMATION
  Report Type: 
  Country: None (occurrence: None)
  Receive Date: 20110916
  Receipt Date: 20110912
  Transmission Date: 20111222
  Serious: Yes (Other)
  Sender: FDA-Public Use
  Company Number: NZ-PFIZER INC-2011214621

PATIENT
  Age: 63 Year
  Sex: Male

DRUGS (1)
  1. EFFEXOR XR [Suspect]
     Dosage: 100MG MANE AND 75MG NOCTE

REACTIONS (3)
  - MYOCARDIAL ISCHAEMIA [None]
  - DYSPNOEA [None]
  - EPILEPSY [None]
